FAERS Safety Report 4679682-5 (Version None)
Quarter: 2005Q2

REPORT INFORMATION
  Report Type: 
  Country: None (occurrence: None)
  Receive Date: 20050602
  Receipt Date: 20050524
  Transmission Date: 20051028
  Serious: Yes (Disabling, Other)
  Sender: FDA-Public Use
  Company Number: US-JNJFOC-20050506588

PATIENT
  Age: 74 Year
  Sex: Male
  Weight: 113.4 kg

DRUGS (8)
  1. DURAGESIC-100 [Suspect]
     Route: 062
     Dates: start: 20010101, end: 20040801
  2. NEXIUM [Concomitant]
     Route: 049
     Dates: start: 19950101
  3. NEURONTIN [Concomitant]
     Route: 049
  4. ULTRAM [Concomitant]
     Route: 049
  5. PERCOCET [Concomitant]
     Route: 049
     Dates: start: 20040801
  6. PERCOCET [Concomitant]
     Dosage: 5/325 MG
     Route: 049
     Dates: start: 20040801
  7. ZYLOPRIM [Concomitant]
     Route: 049
     Dates: start: 20021201
  8. METOPROLOL [Concomitant]
     Indication: BLOOD PRESSURE
     Route: 049

REACTIONS (4)
  - ASTHENIA [None]
  - DYSARTHRIA [None]
  - HEMIPLEGIA [None]
  - NERVOUS SYSTEM DISORDER [None]
